FAERS Safety Report 16948129 (Version 1)
Quarter: 2019Q4

REPORT INFORMATION
  Report Type: Spontaneous
  Country: US (occurrence: US)
  Receive Date: 20191022
  Receipt Date: 20191022
  Transmission Date: 20200122
  Serious: No
  Sender: FDA-Public Use
  Company Number: US-ROCHE-2366757

PATIENT
  Sex: Female

DRUGS (8)
  1. FISH OIL [Concomitant]
     Active Substance: FISH OIL
     Route: 065
  2. PREDNISONE. [Concomitant]
     Active Substance: PREDNISONE
     Route: 065
  3. ZELBORAF [Suspect]
     Active Substance: VEMURAFENIB
     Indication: LYMPHADENOPATHY
     Route: 065
     Dates: start: 20181127
  4. ONDANSETRON [Concomitant]
     Active Substance: ONDANSETRON
     Route: 065
  5. FLUCONAZOLE. [Concomitant]
     Active Substance: FLUCONAZOLE
     Route: 065
  6. SYNTHROID [Concomitant]
     Active Substance: LEVOTHYROXINE SODIUM
     Route: 065
  7. LIOTHYRONINE [Concomitant]
     Active Substance: LIOTHYRONINE
     Route: 065
  8. PYRIDOSTIGMINE [Concomitant]
     Active Substance: PYRIDOSTIGMINE
     Route: 065

REACTIONS (1)
  - Malaise [Not Recovered/Not Resolved]
